FAERS Safety Report 10133320 (Version 1)
Quarter: 2014Q2

REPORT INFORMATION
  Report Type: Report from Study
  Country: DE (occurrence: DE)
  Receive Date: 20140428
  Receipt Date: 20140428
  Transmission Date: 20141212
  Serious: Yes (Hospitalization, Disabling, Other)
  Sender: FDA-Public Use
  Company Number: DE-ASTRAZENECA-2014SE26731

PATIENT
  Age: 58 Year
  Sex: Male

DRUGS (3)
  1. TICAGRELOR [Suspect]
     Indication: ACUTE CORONARY SYNDROME
     Route: 048
     Dates: start: 20131010
  2. ASPIRIN [Suspect]
     Indication: ACUTE CORONARY SYNDROME
     Route: 048
     Dates: start: 20131010
  3. ASPISOL [Concomitant]
     Dosage: 500 MG LOADING DOSE

REACTIONS (1)
  - Angina unstable [Recovered/Resolved]
